FAERS Safety Report 8218009-9 (Version None)
Quarter: 2012Q1

REPORT INFORMATION
  Report Type: 
  Country: None (occurrence: None)
  Receive Date: 20120319
  Receipt Date: 20120316
  Transmission Date: 20120608
  Serious: Yes (Hospitalization)
  Sender: FDA-Public Use
  Company Number: US-PFIZER INC-2012070070

PATIENT
  Sex: Male
  Weight: 89.796 kg

DRUGS (6)
  1. CELEBREX [Concomitant]
     Dosage: UNK
  2. OXYCODONE [Concomitant]
     Indication: PAIN
     Dosage: UNK, EVERY SIX HOURS
  3. CHANTIX [Suspect]
     Dosage: 1 MG, 2X/DAY
     Route: 048
     Dates: end: 20120114
  4. CHANTIX [Suspect]
     Indication: SMOKING CESSATION THERAPY
     Dosage: 0.5 MG, 1X/DAY
     Route: 048
     Dates: start: 20111201
  5. ASPIRIN [Concomitant]
     Dosage: UNK, 1X/DAY
  6. PLAVIX [Concomitant]
     Dosage: UNK

REACTIONS (5)
  - BLOOD CHOLESTEROL INCREASED [None]
  - SUICIDAL IDEATION [None]
  - NIGHTMARE [None]
  - AGGRESSION [None]
  - HALLUCINATION [None]
